FAERS Safety Report 13668651 (Version 1)
Quarter: 2017Q2

REPORT INFORMATION
  Report Type: Spontaneous
  Country: US (occurrence: US)
  Receive Date: 20170620
  Receipt Date: 20170620
  Transmission Date: 20170830
  Serious: Yes (Other)
  Sender: FDA-Public Use
  Company Number: None

PATIENT
  Age: 52 Year
  Sex: Male
  Weight: 76.3 kg

DRUGS (1)
  1. RITUXAN [Suspect]
     Active Substance: RITUXIMAB
     Indication: BURKITT^S LYMPHOMA
     Dosage: Q 3 WEEKS WITH CHOP
     Route: 042
     Dates: start: 20170608

REACTIONS (2)
  - Ear pruritus [None]
  - Infusion related reaction [None]

NARRATIVE: CASE EVENT DATE: 20170608
